FAERS Safety Report 15580659 (Version 2)
Quarter: 2018Q4

REPORT INFORMATION
  Report Type: Spontaneous
  Country: AU (occurrence: AU)
  Receive Date: 20181102
  Receipt Date: 20181102
  Transmission Date: 20190205
  Serious: Yes (Other)
  Sender: FDA-Public Use
  Company Number: AU-BAYER-RCH-219103

PATIENT
  Age: 70 Year
  Sex: Male

DRUGS (7)
  1. CEFTRIAXONE SODIUM. [Suspect]
     Active Substance: CEFTRIAXONE SODIUM
     Indication: INFECTION PARASITIC
     Dosage: 2 G (DAILY DOSE), , ORAL
     Route: 048
     Dates: start: 19960305, end: 19960313
  2. AUGMENTIN [Suspect]
     Active Substance: AMOXICILLIN\CLAVULANATE POTASSIUM
     Indication: INFECTION PARASITIC
     Dosage: 750 MG (DAILY DOSE), , ORAL
     Route: 048
     Dates: start: 19960313, end: 19960314
  3. ASPIRIN. [Suspect]
     Active Substance: ASPIRIN
     Indication: EMBOLISM
     Dosage: 100 MG (DAILY DOSE), , ORAL
     Route: 048
     Dates: start: 19960306
  4. PARACETAMOL + CODEINE PHOSPHATE [Suspect]
     Active Substance: ACETAMINOPHEN\CODEINE PHOSPHATE
     Indication: PAIN
     Route: 048
     Dates: start: 19960305
  5. GENTAMICIN SULFATE [GENTAMICIN SULFATE] [Suspect]
     Active Substance: GENTAMICIN SULFATE
     Indication: INFECTION PARASITIC
     Dosage: 240 MG (DAILY DOSE), , UNKNOWN
     Route: 065
     Dates: start: 19960306, end: 19960312
  6. HEPARIN SODIUM. [Suspect]
     Active Substance: HEPARIN SODIUM
     Indication: EMBOLISM
     Dosage: 10 KIU (DAILY DOSE), , SUBCUTANEOUS
     Route: 058
     Dates: start: 19960305, end: 19960315
  7. METHYLDOPA. [Suspect]
     Active Substance: METHYLDOPA
     Indication: HYPERTENSION
     Dosage: 1 G (DAILY DOSE), , ORAL
     Route: 048
     Dates: start: 19960306

REACTIONS (2)
  - Renal impairment [Not Recovered/Not Resolved]
  - Deafness [Not Recovered/Not Resolved]

NARRATIVE: CASE EVENT DATE: 19960321
